FAERS Safety Report 22175336 (Version 4)
Quarter: 2024Q1

REPORT INFORMATION
  Report Type: Spontaneous
  Country: US (occurrence: US)
  Receive Date: 20230405
  Receipt Date: 20240201
  Transmission Date: 20240410
  Serious: Yes (Hospitalization, Other)
  Sender: FDA-Public Use
  Company Number: US-PFIZER INC-PV202300060286

PATIENT
  Age: 65 Year
  Sex: Female
  Weight: 92 kg

DRUGS (13)
  1. XELJANZ XR [Suspect]
     Active Substance: TOFACITINIB CITRATE
     Indication: Psoriasis
     Dosage: 11 MG, DAILY
     Route: 048
     Dates: start: 20200924
  2. XELJANZ XR [Suspect]
     Active Substance: TOFACITINIB CITRATE
     Dosage: 11 MG, DAILY
     Route: 048
     Dates: start: 20230620
  3. INSULIN NOS [Concomitant]
     Active Substance: INSULIN NOS
     Dosage: 18 IU, DAILY
  4. ATORVASTATIN [Concomitant]
     Active Substance: ATORVASTATIN
     Dosage: 10 MG, DAILY
  5. LOSARTAN [Concomitant]
     Active Substance: LOSARTAN
     Dosage: 50 MG, DAILY
  6. AMLODIPINE [Concomitant]
     Active Substance: AMLODIPINE BESYLATE
     Dosage: 5 MG, DAILY
  7. OZEMPIC [Concomitant]
     Active Substance: SEMAGLUTIDE
     Dosage: 0.25 MG + 5 CLICKS WEEKLY
  8. DILTIAZEM [Concomitant]
     Active Substance: DILTIAZEM
     Dosage: 180 MG, DAILY
  9. METFORMIN [Concomitant]
     Active Substance: METFORMIN HYDROCHLORIDE
     Dosage: 1000 MG, 2X/DAY
  10. ANASTROZOLE [Concomitant]
     Active Substance: ANASTROZOLE
     Dosage: 1 MG, DAILY
  11. TRIAMCINOLONE [Concomitant]
     Active Substance: TRIAMCINOLONE
     Dosage: UNK, AS NEEDED
  12. CALCIPOTRIENE [Concomitant]
     Active Substance: CALCIPOTRIENE
     Dosage: UNK, AS NEEDED
  13. VTAMA [Concomitant]
     Active Substance: TAPINAROF
     Dosage: UNK

REACTIONS (9)
  - Neck pain [Recovered/Resolved]
  - Fibromyalgia [Unknown]
  - Paraesthesia [Unknown]
  - Psoriasis [Not Recovered/Not Resolved]
  - Arthralgia [Unknown]
  - Pain [Unknown]
  - Osteoarthritis [Unknown]
  - Pruritus [Unknown]
  - Off label use [Not Recovered/Not Resolved]

NARRATIVE: CASE EVENT DATE: 20230621
